FAERS Safety Report 17765359 (Version 1)
Quarter: 2020Q2

REPORT INFORMATION
  Report Type: Spontaneous
  Country: US (occurrence: US)
  Receive Date: 20200509
  Receipt Date: 20200509
  Transmission Date: 20200714
  Serious: Yes (Hospitalization)
  Sender: FDA-Public Use
  Company Number: None

PATIENT
  Age: 48 Year
  Sex: Female
  Weight: 74.8 kg

DRUGS (3)
  1. BLEOMYCIN [Suspect]
     Active Substance: BLEOMYCIN SULFATE
     Dosage: ?          OTHER DOSE:30 UNIT;?
     Dates: end: 20200421
  2. ETOPOSIDE (VP-16) [Suspect]
     Active Substance: ETOPOSIDE
     Dates: end: 20200424
  3. CISPLATIN. [Suspect]
     Active Substance: CISPLATIN
     Dates: end: 20200424

REACTIONS (2)
  - Platelet count decreased [None]
  - Back pain [None]

NARRATIVE: CASE EVENT DATE: 20200501
